FAERS Safety Report 11929497 (Version 2)
Quarter: 2016Q2

REPORT INFORMATION
  Report Type: Spontaneous
  Country: FR (occurrence: FR)
  Receive Date: 20160120
  Receipt Date: 20160419
  Transmission Date: 20160815
  Serious: Yes (Hospitalization)
  Sender: FDA-Public Use
  Company Number: FR-AUROBINDO-AUR-APL-2016-00189

PATIENT
  Age: 78 Year
  Sex: Male

DRUGS (15)
  1. GABAPENTINE ARROW GENERIQUES CAPSULES 300MG [Suspect]
     Active Substance: GABAPENTIN
     Dosage: 300 MG, DAILY (3 CAPSULE)
     Route: 065
     Dates: start: 20151029, end: 20151216
  2. GABAPENTINE ARROW GENERIQUES CAPSULES 300MG [Suspect]
     Active Substance: GABAPENTIN
     Dosage: 100 MG, DAILY
     Route: 065
     Dates: start: 20151217, end: 20160113
  3. IMOVANE [Concomitant]
     Active Substance: ZOPICLONE
     Indication: PRODUCT USED FOR UNKNOWN INDICATION
     Dosage: 7.5 MG, 1/2 TABLET DAILY
     Route: 065
  4. GABAPENTINE ARROW GENERIQUES CAPSULES 300MG [Suspect]
     Active Substance: GABAPENTIN
     Indication: PAIN
     Dosage: 300 MG 1  CAPSULE, DAILY
     Route: 065
     Dates: start: 20150912
  5. GABAPENTINE ARROW GENERIQUES CAPSULES 300MG [Suspect]
     Active Substance: GABAPENTIN
     Dosage: 600 MG, 3 TIMES A DAY (3 CAPSULES)
     Route: 065
     Dates: start: 20150920, end: 20151026
  6. GABAPENTINE ARROW GENERIQUES CAPSULES 300MG [Suspect]
     Active Substance: GABAPENTIN
     Dosage: 400 MG, 3 TIMES A DAY (3 CAPSULES)
     Route: 065
     Dates: start: 20150915, end: 20150920
  7. COUMADINE [Concomitant]
     Active Substance: WARFARIN SODIUM
     Indication: PRODUCT USED FOR UNKNOWN INDICATION
     Dosage: 2 MG, UNK
     Route: 065
  8. GABAPENTINE ARROW GENERIQUES CAPSULES 300MG [Suspect]
     Active Substance: GABAPENTIN
     Dosage: 300 MG, TWO TIMES A DAY (2 CAPSULES)
     Route: 065
     Dates: start: 20150914
  9. PANTOPRAZOLE SODIUM. [Suspect]
     Active Substance: PANTOPRAZOLE SODIUM
     Indication: PRODUCT USED FOR UNKNOWN INDICATION
     Dosage: 20 MG, ONCE A DAY
     Route: 048
     Dates: start: 20151123, end: 20151228
  10. CEFIXIME. [Concomitant]
     Active Substance: CEFIXIME
     Indication: PRODUCT USED FOR UNKNOWN INDICATION
     Dosage: 200 MG, TWO TIMES A DAY
     Route: 065
  11. GABAPENTINE ARROW [Concomitant]
     Active Substance: GABAPENTIN
     Indication: PRODUCT USED FOR UNKNOWN INDICATION
     Dosage: 600 MG, UNK
     Route: 065
     Dates: start: 20150921, end: 20151029
  12. CELLCEPT [Concomitant]
     Active Substance: MYCOPHENOLATE MOFETIL\MYCOPHENOLATE MOFETIL HYDROCHLORIDE
     Indication: PRODUCT USED FOR UNKNOWN INDICATION
     Dosage: 500 UNK, FOUR TIMES/DAY
     Route: 065
  13. GABAPENTINE ARROW GENERIQUES CAPSULES 300MG [Suspect]
     Active Substance: GABAPENTIN
     Dosage: 400 MG, 3 TIMES A DAY (3 CAPSULE)
     Route: 065
     Dates: start: 20151026, end: 20151029
  14. VERSATIS [Concomitant]
     Active Substance: LIDOCAINE
     Indication: PRODUCT USED FOR UNKNOWN INDICATION
     Dosage: 5 %, ONCE A DAY
     Route: 065
  15. MIANSERINE [Concomitant]
     Active Substance: MIANSERIN HYDROCHLORIDE
     Indication: PRODUCT USED FOR UNKNOWN INDICATION
     Dosage: 30 MG, UNK
     Route: 065

REACTIONS (1)
  - Purpura [Recovered/Resolved]

NARRATIVE: CASE EVENT DATE: 20151216
